FAERS Safety Report 7932826-1 (Version None)
Quarter: 2011Q4

REPORT INFORMATION
  Report Type: 
  Country: None (occurrence: None)
  Receive Date: 20111122
  Receipt Date: 20111115
  Transmission Date: 20120403
  Serious: Yes (Other)
  Sender: FDA-Public Use
  Company Number: US-PFIZER INC-2011279399

PATIENT
  Sex: Female

DRUGS (2)
  1. DETROL LA [Suspect]
     Indication: MICTURITION DISORDER
  2. DETROL [Suspect]
     Indication: MICTURITION DISORDER
     Dosage: UNK

REACTIONS (2)
  - ABASIA [None]
  - MALAISE [None]
